FAERS Safety Report 21896412 (Version 2)
Quarter: 2023Q1

REPORT INFORMATION
  Report Type: Report from Study
  Country: IN (occurrence: IN)
  Receive Date: 20230123
  Receipt Date: 20230307
  Transmission Date: 20230418
  Serious: Yes (Other)
  Sender: FDA-Public Use
  Company Number: IN-002147023-NVSC2020IN306820

PATIENT
  Age: 23 Year
  Sex: Male

DRUGS (11)
  1. SECUKINUMAB [Suspect]
     Active Substance: SECUKINUMAB
     Indication: Ankylosing spondylitis
     Dosage: UNK
     Route: 065
     Dates: start: 20191024
  2. SECUKINUMAB [Suspect]
     Active Substance: SECUKINUMAB
     Dosage: 150 MG, OTHER (EVERY ALTERNATE MONTH)
     Route: 058
     Dates: start: 20200207
  3. SECUKINUMAB [Suspect]
     Active Substance: SECUKINUMAB
     Dosage: 150 MG, OTHER (EVERY ALTERNATE MONTH)
     Route: 058
     Dates: start: 20200510
  4. SECUKINUMAB [Suspect]
     Active Substance: SECUKINUMAB
     Dosage: 150 MG, OTHER
     Route: 058
     Dates: start: 20200721
  5. SECUKINUMAB [Suspect]
     Active Substance: SECUKINUMAB
     Dosage: 150 MG, OTHER
     Route: 058
     Dates: start: 20201107
  6. SECUKINUMAB [Suspect]
     Active Substance: SECUKINUMAB
     Dosage: 150 MG, QMO
     Route: 058
  7. SECUKINUMAB [Suspect]
     Active Substance: SECUKINUMAB
     Dosage: UNK
     Route: 065
     Dates: start: 20221116
  8. SECUKINUMAB [Suspect]
     Active Substance: SECUKINUMAB
     Dosage: 150 MG (06 WEEKLY)
     Route: 058
  9. OSTOCALCIUM [Concomitant]
     Indication: Product used for unknown indication
     Dosage: UNK, QD (AFTER MEALS)
     Route: 065
  10. ETOSHINE [Concomitant]
     Indication: Product used for unknown indication
     Dosage: 1 DOSAGE FORM, PRN
     Route: 065
  11. PROLIA [Concomitant]
     Active Substance: DENOSUMAB
     Indication: Product used for unknown indication
     Dosage: UNK (60 MG PFS/ 1 ML)
     Route: 058

REACTIONS (8)
  - Thrombocytopenia [Unknown]
  - Back pain [Unknown]
  - Musculoskeletal stiffness [Unknown]
  - Osteoporosis [Unknown]
  - Osteoarthritis [Unknown]
  - Red blood cell sedimentation rate increased [Unknown]
  - C-reactive protein increased [Unknown]
  - Product use issue [Unknown]

NARRATIVE: CASE EVENT DATE: 20221111
